FAERS Safety Report 19293449 (Version 1)
Quarter: 2021Q2

REPORT INFORMATION
  Report Type: Spontaneous
  Country: US (occurrence: US)
  Receive Date: 20210522
  Receipt Date: 20210522
  Transmission Date: 20210717
  Serious: Yes (Death)
  Sender: FDA-Public Use
  Company Number: None

PATIENT
  Age: 8 Year
  Sex: Male
  Weight: 56.6 kg

DRUGS (3)
  1. CLOLAR [Suspect]
     Active Substance: CLOFARABINE
     Dates: end: 20210327
  2. BUSULFAN. [Suspect]
     Active Substance: BUSULFAN
     Dates: end: 20210327
  3. FLUDARABINE PHOSPHATE. [Suspect]
     Active Substance: FLUDARABINE PHOSPHATE
     Dates: end: 20210327

REACTIONS (11)
  - Venoocclusive liver disease [None]
  - Pallor [None]
  - Pancytopenia [None]
  - Transplant failure [None]
  - Pyrexia [None]
  - Septic shock [None]
  - Haemodialysis [None]
  - Fatigue [None]
  - Acute kidney injury [None]
  - Respiratory failure [None]
  - Neutropenic colitis [None]

NARRATIVE: CASE EVENT DATE: 20210420
